FAERS Safety Report 9245338 (Version 2)
Quarter: 2013Q2

REPORT INFORMATION
  Report Type: Spontaneous
  Country: US (occurrence: US)
  Receive Date: 20130422
  Receipt Date: 20130612
  Transmission Date: 20140414
  Serious: Yes (Life-Threatening, Other)
  Sender: FDA-Public Use
  Company Number: US-ASTELLAS-2013US004225

PATIENT
  Age: 58 Year
  Sex: Male
  Weight: 159 kg

DRUGS (2)
  1. LEXISCAN [Suspect]
     Indication: SCAN MYOCARDIAL PERFUSION
     Dosage: 5 ML, TOTAL DOSE
     Route: 065
  2. MYOVIEW /01238501/ [Suspect]
     Indication: SCAN MYOCARDIAL PERFUSION
     Dosage: 33 MCI, TOTAL DOSE
     Route: 065

REACTIONS (6)
  - Haematemesis [Unknown]
  - Tracheal oedema [Unknown]
  - Respiratory arrest [Unknown]
  - Loss of consciousness [Unknown]
  - Dyspnoea [Unknown]
  - Headache [Unknown]
